FAERS Safety Report 8525644-7 (Version None)
Quarter: 2012Q3

REPORT INFORMATION
  Report Type: 
  Country: None (occurrence: None)
  Receive Date: 20120720
  Receipt Date: 20120712
  Transmission Date: 20120928
  Serious: Yes (Other)
  Sender: FDA-Public Use
  Company Number: JP-009507513-1206USA05093

PATIENT

DRUGS (3)
  1. BORTEZOMIB [Concomitant]
     Indication: MULTIPLE MYELOMA
     Dosage: 1.3 MG/M2, QD
  2. BORTEZOMIB [Concomitant]
     Dosage: 1.0  MG/M2, QD
  3. DEXAMETHASONE [Suspect]
     Indication: MULTIPLE MYELOMA
     Dosage: 20 MG, QD
     Route: 048

REACTIONS (2)
  - ILEUS PARALYTIC [None]
  - CONSTIPATION [None]
